FAERS Safety Report 24843670 (Version 5)
Quarter: 2025Q4

REPORT INFORMATION
  Report Type: Spontaneous
  Country: US (occurrence: US)
  Receive Date: 20250115
  Receipt Date: 20251001
  Transmission Date: 20260117
  Serious: No
  Sender: BRISTOL-MYERS SQUIBB COMPANY
  Company Number: US-BRISTOL-MYERS SQUIBB COMPANY-2025-004861

PATIENT
  Age: 68 Year
  Sex: Female

DRUGS (2)
  1. REVLIMID [Suspect]
     Active Substance: LENALIDOMIDE
     Indication: Plasma cell myeloma
  2. REVLIMID [Suspect]
     Active Substance: LENALIDOMIDE

REACTIONS (7)
  - Respiratory tract congestion [Unknown]
  - Cough [Unknown]
  - Chest discomfort [Unknown]
  - Productive cough [Unknown]
  - Influenza [Unknown]
  - Brain fog [Unknown]
  - Ligament sprain [Unknown]

NARRATIVE: CASE EVENT DATE: 20250109
